FAERS Safety Report 7383041-4 (Version None)
Quarter: 2011Q1

REPORT INFORMATION
  Report Type: 
  Country: None (occurrence: None)
  Receive Date: 20110330
  Receipt Date: 20110325
  Transmission Date: 20110831
  Serious: No
  Sender: FDA-Public Use
  Company Number: US-PFIZER INC-2011020910

PATIENT
  Sex: Female
  Weight: 80.3 kg

DRUGS (10)
  1. PRISTIQ [Suspect]
     Indication: SCHIZOAFFECTIVE DISORDER
     Dosage: 50 MG, 1X/DAY
     Route: 048
     Dates: start: 20101001
  2. EFFEXOR [Suspect]
     Dosage: UNK
  3. ATIVAN [Concomitant]
     Indication: ANXIETY
     Dosage: UNK, AS NEEDED
  4. PRILOSEC [Concomitant]
     Indication: ABDOMINAL DISCOMFORT
     Dosage: UNK
  5. CLOZARIL [Concomitant]
     Dosage: UNK
     Dates: end: 20110101
  6. CALCIUM [Concomitant]
     Indication: OSTEOPENIA
     Dosage: UNK
  7. VENLAFAXINE HCL [Suspect]
     Dosage: UNK
  8. TOPAMAX [Concomitant]
     Dosage: UNK
  9. PALIPERIDONE PALMITATE [Concomitant]
     Indication: SCHIZOAFFECTIVE DISORDER
     Dosage: UNK
  10. SYNTHROID [Concomitant]
     Dosage: UNK

REACTIONS (1)
  - PRURITUS [None]
